FAERS Safety Report 23726177 (Version 8)
Quarter: 2024Q3

REPORT INFORMATION
  Report Type: Spontaneous
  Country: FR (occurrence: FR)
  Receive Date: 20240410
  Receipt Date: 20240822
  Transmission Date: 20241017
  Serious: Yes (Hospitalization, Other)
  Sender: AUROBINDO
  Company Number: FR-002147023-NVSC2023FR120944

PATIENT
  Age: 2 Year
  Sex: Female

DRUGS (38)
  1. VALGANCICLOVIR [Suspect]
     Active Substance: VALGANCICLOVIR
     Indication: Antiviral prophylaxis
     Dosage: UNK
     Route: 065
  2. VALGANCICLOVIR [Suspect]
     Active Substance: VALGANCICLOVIR
     Indication: Cytomegalovirus infection
  3. VALGANCICLOVIR [Suspect]
     Active Substance: VALGANCICLOVIR
     Indication: Cytomegalovirus infection
  4. CYCLOSPORINE [Suspect]
     Active Substance: CYCLOSPORINE
     Indication: Immunosuppressant drug therapy
     Dosage: UNK
     Route: 042
  5. CYCLOSPORINE [Suspect]
     Active Substance: CYCLOSPORINE
     Indication: Nephrotic syndrome
  6. CYCLOSPORINE [Suspect]
     Active Substance: CYCLOSPORINE
     Indication: Prophylaxis against transplant rejection
  7. DARATUMUMAB [Suspect]
     Active Substance: DARATUMUMAB
     Indication: Nephrotic syndrome
     Dosage: AT DAY 150, FIFTH INFUSION
     Route: 065
  8. DARATUMUMAB [Suspect]
     Active Substance: DARATUMUMAB
     Indication: Prophylaxis against transplant rejection
     Dosage: AT DAY 280, 6TH INFUSION
     Route: 065
  9. DARATUMUMAB [Suspect]
     Active Substance: DARATUMUMAB
     Dosage: Q28D (Q4WEEKS)AT 1 G/1.73 M2 FROM DAY 65 (RECEIVED INFUSIONS AT DOSE OF 1G/1.73?M2)
     Route: 065
  10. DARATUMUMAB [Suspect]
     Active Substance: DARATUMUMAB
     Dosage: 1 GRAM (4 WEEK)
     Route: 065
  11. METHYLPREDNISOLONE [Suspect]
     Active Substance: METHYLPREDNISOLONE
     Indication: Prophylaxis against transplant rejection
     Dosage: 1 G/1.73 M2 AT DAYS 6, 8 AND 10 (RECEIVED THREE PULSES ON DAY 6, 7 AND 8 OF TRANSPLANT)
     Route: 065
  12. METHYLPREDNISOLONE [Suspect]
     Active Substance: METHYLPREDNISOLONE
     Indication: Nephrotic syndrome
  13. METHYLPREDNISOLONE [Suspect]
     Active Substance: METHYLPREDNISOLONE
     Indication: Immunosuppression
  14. MYCOPHENOLATE MOFETIL [Suspect]
     Active Substance: MYCOPHENOLATE MOFETIL
     Indication: Nephrotic syndrome
     Dosage: INDUCTION IMMUNOSUPPRESSIVE TREATMENT
     Route: 065
  15. MYCOPHENOLATE MOFETIL [Suspect]
     Active Substance: MYCOPHENOLATE MOFETIL
     Indication: Prophylaxis against transplant rejection
  16. MYCOPHENOLATE MOFETIL [Suspect]
     Active Substance: MYCOPHENOLATE MOFETIL
     Indication: Immunosuppression
  17. OBINUTUZUMAB [Suspect]
     Active Substance: OBINUTUZUMAB
     Indication: Nephrotic syndrome
     Dosage: AT DAY 280, 6TH INFUSION
     Route: 065
  18. OBINUTUZUMAB [Suspect]
     Active Substance: OBINUTUZUMAB
     Dosage: UNK, EVERY WEEK (QW (1 G/1.73 M2, 3/WEEK))
     Route: 042
  19. OBINUTUZUMAB [Suspect]
     Active Substance: OBINUTUZUMAB
     Dosage: AT DAY 150, FIFTH INFUSION
     Route: 065
  20. OBINUTUZUMAB [Suspect]
     Active Substance: OBINUTUZUMAB
     Dosage: 1 GRAM
     Route: 065
  21. PENTAMIDINE [Suspect]
     Active Substance: PENTAMIDINE
     Indication: Pneumocystis jirovecii pneumonia
     Dosage: UNK
  22. PENTAMIDINE [Suspect]
     Active Substance: PENTAMIDINE
     Indication: Antifungal prophylaxis
  23. PENTAMIDINE [Suspect]
     Active Substance: PENTAMIDINE
     Indication: Prophylaxis
  24. RITUXIMAB [Suspect]
     Active Substance: RITUXIMAB
     Indication: Immunosuppressant drug therapy
     Dosage: UNK
     Route: 065
  25. TACROLIMUS [Suspect]
     Active Substance: TACROLIMUS
     Indication: Immunosuppressant drug therapy
     Dosage: AT THE TIME OF INDUCTION
     Route: 065
  26. TACROLIMUS [Suspect]
     Active Substance: TACROLIMUS
     Indication: Prophylaxis against transplant rejection
     Dosage: 10-15 NG/ML
     Route: 065
  27. TACROLIMUS [Suspect]
     Active Substance: TACROLIMUS
     Indication: Nephrotic syndrome
     Dosage: DOSE WAS INCREASED TO TROUGH LEVELS OF UP TO 15NG/ML
     Route: 048
  28. THYMOGLOBULIN [Suspect]
     Active Substance: LAPINE T-LYMPHOCYTE IMMUNE GLOBULIN
     Indication: Prophylaxis against transplant rejection
     Dosage: INDUCTION IMMUNOSUPPRESSIVE TREATMENT
     Route: 065
  29. THYMOGLOBULIN [Suspect]
     Active Substance: LAPINE T-LYMPHOCYTE IMMUNE GLOBULIN
     Indication: Nephrotic syndrome
  30. THYMOGLOBULIN [Suspect]
     Active Substance: LAPINE T-LYMPHOCYTE IMMUNE GLOBULIN
     Indication: Immunosuppression
  31. AZATHIOPRINE [Concomitant]
     Active Substance: AZATHIOPRINE
     Indication: Immunosuppression
     Dosage: UNK
     Route: 065
  32. COTRIMOXAZOLE [Concomitant]
     Active Substance: SULFAMETHOXAZOLE\TRIMETHOPRIM
     Indication: Pneumocystis jirovecii pneumonia
     Dosage: SHE RECEIVED 3 WEEKS OF COTRIMOXAZOLE TREATMENT
     Route: 065
  33. COTRIMOXAZOLE [Concomitant]
     Active Substance: SULFAMETHOXAZOLE\TRIMETHOPRIM
     Indication: Prophylaxis
  34. DARATUMUMAB [Concomitant]
     Active Substance: DARATUMUMAB
     Indication: Nephrotic syndrome
     Dosage: AS A MAINTENANCE TREATMENT SHE FURTHER RECEIVED RE-INJECTIONS
     Route: 065
  35. DARATUMUMAB [Concomitant]
     Active Substance: DARATUMUMAB
     Indication: Immunosuppression
     Dosage: SHE RECEIVED A FIFTH INFUSION OF BOTH OBINUTUZUMAB AND DARATUMUMAB
     Route: 065
  36. DARATUMUMAB [Concomitant]
     Active Substance: DARATUMUMAB
     Dosage: SHE RECEIVED A 6TH INFUSION OF OBINUTUZUMAB AND DARATUMUMAB.
     Route: 065
  37. OBINUTUZUMAB [Concomitant]
     Active Substance: OBINUTUZUMAB
     Indication: Nephrotic syndrome
     Dosage: AS A MAINTENANCE TREATMENT SHE FURTHER RECEIVED RE-INJECTIONS
     Route: 065
  38. OBINUTUZUMAB [Concomitant]
     Active Substance: OBINUTUZUMAB
     Indication: Immunosuppression
     Dosage: RECEIVED INFUSIONS AT DOSE OF 1G/1.73?M2
     Route: 065

REACTIONS (14)
  - Haematotoxicity [Unknown]
  - Drug ineffective [Unknown]
  - Hypogammaglobulinaemia [Recovered/Resolved]
  - COVID-19 [Unknown]
  - Hepatitis B [Unknown]
  - Neutropenia [Unknown]
  - Pneumocystis jirovecii pneumonia [Unknown]
  - Cytomegalovirus infection reactivation [Unknown]
  - Measles [Unknown]
  - Varicella [Unknown]
  - Cough [Unknown]
  - Drug ineffective for unapproved indication [Unknown]
  - Intentional product use issue [Unknown]
  - Off label use [Unknown]
